FAERS Safety Report 6996914-9 (Version None)
Quarter: 2010Q3

REPORT INFORMATION
  Report Type: 
  Country: None (occurrence: None)
  Receive Date: 20100918
  Receipt Date: 20090805
  Transmission Date: 20110219
  Serious: No
  Sender: FDA-Public Use
  Company Number: US-WYE-H10476309

PATIENT
  Sex: Female

DRUGS (5)
  1. PREMPRO [Suspect]
     Indication: HOT FLUSH
     Route: 048
     Dates: start: 20070101
  2. PREMPRO [Suspect]
     Indication: NIGHT SWEATS
  3. CALCIUM [Concomitant]
  4. ACETYLSALICYLIC ACID [Concomitant]
  5. ALLEGRA [Concomitant]

REACTIONS (1)
  - COELIAC DISEASE [None]
